FAERS Safety Report 12626049 (Version 3)
Quarter: 2016Q3

REPORT INFORMATION
  Report Type: Other
  Country: CO (occurrence: CO)
  Receive Date: 20160805
  Receipt Date: 20160818
  Transmission Date: 20161109
  Serious: Yes (Other)
  Sender: FDA-Public Use
  Company Number: CO-SHIRE-CO201609902

PATIENT
  Age: 21 Year
  Sex: Male
  Weight: 40 kg

DRUGS (1)
  1. ELAPRASE [Suspect]
     Active Substance: IDURSULFASE
     Indication: MUCOPOLYSACCHARIDOSIS II
     Dosage: 18 MG (3 VIALS), 1X/WEEK
     Route: 041
     Dates: start: 2011

REACTIONS (6)
  - Face oedema [Unknown]
  - Dyspnoea [Unknown]
  - Hypertension [Recovered/Resolved]
  - Infusion related reaction [Unknown]
  - Cyanosis [Unknown]
  - Angioedema [Unknown]

NARRATIVE: CASE EVENT DATE: 20160802
